FAERS Safety Report 8756769 (Version 2)
Quarter: 2013Q1

REPORT INFORMATION
  Report Type: Spontaneous
  Country: DE (occurrence: DE)
  Receive Date: 20120822
  Receipt Date: 20130225
  Transmission Date: 20140127
  Serious: Yes (Life-Threatening, Hospitalization, Other)
  Sender: FDA-Public Use
  Company Number: DE-ELI_LILLY_AND_COMPANY-DE201208005755

PATIENT
  Age: 54 Year
  Sex: Female
  Weight: 60 kg

DRUGS (6)
  1. CYMBALTA [Suspect]
     Dosage: UNK, UNKNOWN
     Route: 048
  2. CYMBALTA [Suspect]
     Dosage: 1680 MG, SINGLE
     Dates: start: 20120817, end: 20120817
  3. CYMBALTA [Suspect]
     Dosage: 3360 MG, SINGLE
     Dates: start: 20120817, end: 20120817
  4. LITHIUM [Concomitant]
     Dosage: 22500 MG, SINGLE
     Dates: start: 20120817, end: 20120817
  5. SAROTEN [Concomitant]
     Dosage: 1 DF, SINGLE
     Dates: start: 20120817, end: 20120817
  6. DIAZEPAM [Concomitant]
     Dosage: 25 ML, SINGLE
     Dates: start: 20120817, end: 20120817

REACTIONS (14)
  - Respiratory failure [Unknown]
  - Cardiovascular insufficiency [Unknown]
  - Suicide attempt [Unknown]
  - Sepsis [Unknown]
  - Agitation [Unknown]
  - Somnolence [Unknown]
  - Disorientation [Unknown]
  - Electrocardiogram QT prolonged [Unknown]
  - Pneumonia aspiration [Unknown]
  - Ileus paralytic [Unknown]
  - Convulsion [Unknown]
  - Intentional overdose [Unknown]
  - Oedema [Unknown]
  - Polyuria [Unknown]
